FAERS Safety Report 23230046 (Version 1)
Quarter: 2023Q4

REPORT INFORMATION
  Report Type: Other
  Country: US (occurrence: None)
  Receive Date: 20231127
  Receipt Date: 20231127
  Transmission Date: 20240109
  Serious: Yes (Hospitalization, Other)
  Sender: FDA-Public Use
  Company Number: US-ROCHE-3460136

PATIENT
  Age: 42 Year
  Sex: Male
  Weight: 79.45 kg

DRUGS (9)
  1. OCREVUS [Suspect]
     Active Substance: OCRELIZUMAB
     Indication: Secondary progressive multiple sclerosis
     Route: 042
  2. OCREVUS [Suspect]
     Active Substance: OCRELIZUMAB
     Dosage: STARTED LATE --2019 OR EARLY --2020, WHEN COVID HIT. ;ONGOING: NO
     Route: 042
  3. OMEPRAZOLE [Concomitant]
     Active Substance: OMEPRAZOLE
  4. IBUPROFEN [Concomitant]
     Active Substance: IBUPROFEN
  5. LOSARTAN [Concomitant]
     Active Substance: LOSARTAN
  6. AMLODAPINE [Concomitant]
  7. LORAZEPAM [Concomitant]
     Active Substance: LORAZEPAM
  8. ELIQUIS [Concomitant]
     Active Substance: APIXABAN
  9. TIZANIDINE [Concomitant]
     Active Substance: TIZANIDINE

REACTIONS (22)
  - Small intestinal perforation [Recovering/Resolving]
  - Sepsis [Recovered/Resolved]
  - Thrombosis [Not Recovered/Not Resolved]
  - Gastrointestinal inflammation [Recovering/Resolving]
  - Hypertension [Not Recovered/Not Resolved]
  - Hypotension [Not Recovered/Not Resolved]
  - Abdominal distension [Not Recovered/Not Resolved]
  - Abdominal rigidity [Recovering/Resolving]
  - Gastric infection [Unknown]
  - Pneumonia [Unknown]
  - Vomiting [Recovering/Resolving]
  - Feeding disorder [Recovering/Resolving]
  - Eating disorder [Recovering/Resolving]
  - Nausea [Recovering/Resolving]
  - Thrombosis [Not Recovered/Not Resolved]
  - Cognitive disorder [Not Recovered/Not Resolved]
  - Anxiety [Unknown]
  - Hyperchlorhydria [Unknown]
  - Muscle tightness [Unknown]
  - Therapeutic response shortened [Unknown]
  - Weight increased [Unknown]
  - Pain [Recovered/Resolved]

NARRATIVE: CASE EVENT DATE: 20220701
